FAERS Safety Report 15088761 (Version 3)
Quarter: 2023Q2

REPORT INFORMATION
  Report Type: Spontaneous
  Country: US (occurrence: US)
  Receive Date: 20180629
  Receipt Date: 20230628
  Transmission Date: 20230721
  Serious: Yes (Hospitalization)
  Sender: FDA-Public Use
  Company Number: US-PFIZER INC-2018262979

PATIENT
  Age: 73 Year
  Sex: Male

DRUGS (2)
  1. EUCRISA [Suspect]
     Active Substance: CRISABOROLE
     Indication: Dermatitis atopic
     Dosage: AS NEEDED (APPLY TO AFFECTED AREA TWICE A DAY)
     Dates: start: 20180519
  2. EUCRISA [Suspect]
     Active Substance: CRISABOROLE
     Indication: Pruritus

REACTIONS (4)
  - Pruritus [Recovered/Resolved]
  - Condition aggravated [Unknown]
  - Burning sensation [Recovered/Resolved]
  - Sleep disorder due to a general medical condition [Unknown]
